FAERS Safety Report 8102563-1 (Version None)
Quarter: 2012Q1

REPORT INFORMATION
  Report Type: 
  Country: None (occurrence: None)
  Receive Date: 20120201
  Receipt Date: 20120120
  Transmission Date: 20120608
  Serious: Yes (Other)
  Sender: FDA-Public Use
  Company Number: US-JNJFOC-20111209917

PATIENT
  Sex: Female
  Weight: 63.96 kg

DRUGS (8)
  1. PENTASA [Concomitant]
     Indication: CROHN'S DISEASE
     Dosage: DOSE STRENGTH: 500MG
     Route: 065
  2. MULTI-VITAMINS [Concomitant]
     Dosage: FOR MORE THAN ONE YEAR
     Route: 065
  3. IRON SUPPLEMENT [Concomitant]
     Dosage: FOR MORE THAN A YEAR
     Route: 065
  4. VITAMINE E [Concomitant]
     Dosage: FOR MORE THAN A YEAR
     Route: 065
  5. REMICADE [Suspect]
     Indication: CROHN'S DISEASE
     Route: 042
  6. ORAL CONTRACEPTIVE [Concomitant]
     Dosage: FOR MORE THAN ONE YEAR
     Route: 065
  7. IBUPROFEN [Concomitant]
     Dosage: OCCASIONAL
     Route: 065
  8. FLAGYL [Concomitant]
     Indication: GINGIVITIS
     Dosage: WITHIN ONE MONTH OF 12-AUG-2011.
     Route: 065
     Dates: start: 20110101

REACTIONS (2)
  - DIARRHOEA [None]
  - NECROTISING ULCERATIVE GINGIVOSTOMATITIS [None]
